FAERS Safety Report 9990094 (Version 1)
Quarter: 2014Q1

REPORT INFORMATION
  Report Type: Spontaneous
  Country: US (occurrence: None)
  Receive Date: 20140123
  Receipt Date: 20140123
  Transmission Date: 20141002
  Serious: Yes (Hospitalization)
  Sender: FDA-Public Use
  Company Number: UTC-036507

PATIENT
  Age: 52 Year
  Sex: Female
  Weight: 66.8 kg

DRUGS (2)
  1. REMODULIN [Suspect]
     Indication: COR PULMONALE CHRONIC
     Dosage: 115.2 UG/KG (0.08 UG/KG, 1 IN 1 MIN)
     Route: 041
     Dates: start: 20090127
  2. SILDENAFIL (UNKNOWN) [Concomitant]

REACTIONS (1)
  - Device related infection [None]
